FAERS Safety Report 20545012 (Version 1)
Quarter: 2022Q1

REPORT INFORMATION
  Report Type: Spontaneous
  Country: US (occurrence: US)
  Receive Date: 20220303
  Receipt Date: 20220303
  Transmission Date: 20220423
  Serious: No
  Sender: FDA-Public Use
  Company Number: US-ALLERGAN-2135676US

PATIENT
  Sex: Female

DRUGS (1)
  1. RESTASIS [Suspect]
     Active Substance: CYCLOSPORINE
     Indication: Product used for unknown indication
     Dosage: UNK
     Dates: end: 20211020

REACTIONS (8)
  - Multiple use of single-use product [Unknown]
  - Accidental exposure to product [Unknown]
  - Erythema [Unknown]
  - Skin irritation [Unknown]
  - Eye pain [Recovering/Resolving]
  - Liquid product physical issue [Unknown]
  - Ocular hyperaemia [Not Recovered/Not Resolved]
  - Periorbital swelling [Not Recovered/Not Resolved]
